FAERS Safety Report 13401731 (Version 1)
Quarter: 2017Q2

REPORT INFORMATION
  Report Type: Spontaneous
  Country: US (occurrence: US)
  Receive Date: 20170404
  Receipt Date: 20170404
  Transmission Date: 20170830
  Serious: Yes (Other)
  Sender: FDA-Public Use
  Company Number: PHEH2017US009138

PATIENT
  Sex: Male

DRUGS (1)
  1. VOTRIENT [Suspect]
     Active Substance: PAZOPANIB HYDROCHLORIDE
     Indication: RENAL CANCER
     Dosage: 600 MG, QD
     Route: 048
     Dates: start: 20160814

REACTIONS (7)
  - Hair colour changes [Unknown]
  - Skin depigmentation [Unknown]
  - Stomatitis [Unknown]
  - Skin burning sensation [Unknown]
  - Lethargy [Unknown]
  - Decreased appetite [Unknown]
  - Diarrhoea [Unknown]
